FAERS Safety Report 7918514-6 (Version None)
Quarter: 2011Q4

REPORT INFORMATION
  Report Type: 
  Country: None (occurrence: None)
  Receive Date: 20111116
  Receipt Date: 20111107
  Transmission Date: 20120403
  Serious: Yes (Hospitalization)
  Sender: FDA-Public Use
  Company Number: FR-ASTRAZENECA-2011SE67650

PATIENT
  Age: 66 Year
  Sex: Male

DRUGS (8)
  1. SPECIAFOLDINE [Concomitant]
  2. ALLOPURINOL [Concomitant]
  3. LEVOTHYROXINE SODIUM [Concomitant]
     Route: 048
  4. CLORAZEPATE DIPOTASSIUM [Suspect]
     Route: 048
     Dates: start: 20110501, end: 20110912
  5. CRESTOR [Suspect]
     Route: 048
     Dates: end: 20110912
  6. CLONAZEPAM [Suspect]
     Route: 048
     Dates: end: 20110912
  7. PREVISCAN [Concomitant]
  8. TRAMADOL HCL [Concomitant]
     Dosage: TIMELY

REACTIONS (2)
  - SOMNOLENCE [None]
  - FALL [None]
